FAERS Safety Report 7335926-2 (Version None)
Quarter: 2011Q1

REPORT INFORMATION
  Report Type: 
  Country: None (occurrence: None)
  Receive Date: 20110307
  Receipt Date: 20110304
  Transmission Date: 20110831
  Serious: Yes (Life-Threatening, Hospitalization)
  Sender: FDA-Public Use
  Company Number: JP-ASTRAZENECA-2011SE12029

PATIENT
  Age: 57 Year
  Sex: Female

DRUGS (5)
  1. PANCREAZE [Concomitant]
     Route: 048
  2. CRESTOR [Suspect]
     Indication: HYPERLIPIDAEMIA
     Route: 048
     Dates: start: 20100106, end: 20110302
  3. MYONAL [Concomitant]
     Route: 048
  4. NORVASC [Concomitant]
     Route: 048
  5. BLOPRESS [Concomitant]
     Route: 048

REACTIONS (1)
  - HEPATITIS FULMINANT [None]
